FAERS Safety Report 15263475 (Version 12)
Quarter: 2022Q2

REPORT INFORMATION
  Report Type: Spontaneous
  Country: US (occurrence: US)
  Receive Date: 20180810
  Receipt Date: 20220510
  Transmission Date: 20220720
  Serious: Yes (Other)
  Sender: FDA-Public Use
  Company Number: US-PFIZER INC-2018318532

PATIENT
  Age: 47 Year
  Sex: Female
  Weight: 72.562 kg

DRUGS (18)
  1. SOMAVERT [Suspect]
     Active Substance: PEGVISOMANT
     Indication: Acromegaly
     Dosage: 15 MG ONCE A DAY
     Route: 058
     Dates: start: 2004, end: 2004
  2. SOMAVERT [Suspect]
     Active Substance: PEGVISOMANT
     Dosage: 15 MG, UNK (5 DAYS A WEEK)
     Route: 058
     Dates: start: 200405
  3. SOMAVERT [Suspect]
     Active Substance: PEGVISOMANT
     Dosage: 15 MG ONCE A DAY 4X A WEEK)
     Dates: start: 201811
  4. SOMAVERT [Suspect]
     Active Substance: PEGVISOMANT
     Dosage: 15 MG, UNK(4 DAYS PER WEEK)
     Route: 058
     Dates: start: 2004
  5. SOMAVERT [Suspect]
     Active Substance: PEGVISOMANT
     Dosage: 15 MG (3X A WEEK INSTEAD OF 7X)
     Route: 058
     Dates: start: 2019
  6. SOMAVERT [Suspect]
     Active Substance: PEGVISOMANT
     Dosage: 15 MG (15 MG INJECTION 3 TIMES A WEEK)
     Route: 058
     Dates: start: 200405
  7. LISINOPRIL [Concomitant]
     Active Substance: LISINOPRIL
     Indication: Hypertension
     Dosage: 10 MG, ONCE A DAY
     Route: 048
     Dates: start: 2005
  8. ASPIRIN [Concomitant]
     Active Substance: ASPIRIN
     Dosage: UNK
  9. BIOTIN [Concomitant]
     Active Substance: BIOTIN
     Dosage: UNK
  10. ESTRADIOL [Concomitant]
     Active Substance: ESTRADIOL
     Dosage: UNK
  11. HYDROCORTISONE [Concomitant]
     Active Substance: HYDROCORTISONE
     Dosage: UNK
  12. VITAMIN D3 [Concomitant]
     Active Substance: CHOLECALCIFEROL
     Dosage: UNK
  13. NIASPAN [Concomitant]
     Active Substance: NIACIN
     Dosage: UNK
  14. OSTEO BI-FLEX [CHONDROITIN SULFATE;GLUCOSAMINE HYDROCHLORIDE] [Concomitant]
     Dosage: UNK
  15. PRINIVIL [Concomitant]
     Active Substance: LISINOPRIL
     Dosage: UNK
  16. VITAMIN B12 [Concomitant]
     Active Substance: CYANOCOBALAMIN
     Dosage: UNK
  17. VITAMIN D3 [Concomitant]
     Active Substance: CHOLECALCIFEROL
     Dosage: UNK
  18. OS-CAL 500 [Concomitant]
     Dosage: UNK

REACTIONS (11)
  - Blood calcium increased [Unknown]
  - Injection site bruising [Not Recovered/Not Resolved]
  - Body height decreased [Unknown]
  - Arthralgia [Unknown]
  - Blood cholesterol increased [Unknown]
  - Non-high-density lipoprotein cholesterol increased [Unknown]
  - Glycosylated haemoglobin increased [Unknown]
  - Tri-iodothyronine decreased [Unknown]
  - Injection site pain [Not Recovered/Not Resolved]
  - Off label use [Unknown]
  - Intentional product use issue [Not Recovered/Not Resolved]

NARRATIVE: CASE EVENT DATE: 20040101
